FAERS Safety Report 17372633 (Version 1)
Quarter: 2020Q1

REPORT INFORMATION
  Report Type: Spontaneous
  Country: US (occurrence: US)
  Receive Date: 20200205
  Receipt Date: 20200205
  Transmission Date: 20200409
  Serious: Yes (Other)
  Sender: FDA-Public Use
  Company Number: US-AMGEN-USASP2020016469

PATIENT

DRUGS (6)
  1. CYCLOSPORINE. [Concomitant]
     Active Substance: CYCLOSPORINE
  2. PREDNISONE. [Concomitant]
     Active Substance: PREDNISONE
  3. CINACALCET HCL [Suspect]
     Active Substance: CINACALCET HYDROCHLORIDE
     Indication: HYPERCALCAEMIA
     Dosage: UNK MILLIGRAM, TITRATED UPTO MAXIMUM OF 180MG QD)
     Route: 065
  4. TACROLIMUS. [Concomitant]
     Active Substance: TACROLIMUS
  5. SIROLIMUS. [Concomitant]
     Active Substance: SIROLIMUS
  6. CINACALCET HCL [Suspect]
     Active Substance: CINACALCET HYDROCHLORIDE
     Indication: HYPERPARATHYROIDISM SECONDARY
     Dosage: 30 MILLIGRAM, QD
     Route: 065

REACTIONS (6)
  - Hypocalcaemia [Unknown]
  - Blood alkaline phosphatase decreased [Unknown]
  - N-telopeptide urine decreased [Unknown]
  - Blood creatinine increased [Unknown]
  - Off label use [Unknown]
  - Nausea [Unknown]
